FAERS Safety Report 8212774-2 (Version None)
Quarter: 2012Q1

REPORT INFORMATION
  Report Type: 
  Country: None (occurrence: None)
  Receive Date: 20120315
  Receipt Date: 20120306
  Transmission Date: 20120608
  Serious: Yes (Other)
  Sender: FDA-Public Use
  Company Number: IE-JNJFOC-20120303061

PATIENT
  Age: 80 Year
  Sex: Female

DRUGS (7)
  1. SERTRALINE HYDROCHLORIDE [Concomitant]
     Indication: DEPRESSION
     Route: 065
  2. ZIMOVANE [Concomitant]
     Indication: SEDATION
     Route: 065
  3. LIPITOR [Concomitant]
     Indication: HYPERCHOLESTEROLAEMIA
     Route: 048
  4. ASPIRIN [Concomitant]
     Route: 065
  5. ARICEPT [Concomitant]
     Indication: DEMENTIA ALZHEIMER'S TYPE
     Route: 065
  6. RISPERDAL [Suspect]
     Indication: AGGRESSION
     Route: 048
     Dates: start: 20120213, end: 20120213
  7. MEMANTINE HYDROCHLORIDE [Concomitant]
     Indication: DEMENTIA ALZHEIMER'S TYPE
     Route: 065

REACTIONS (3)
  - HYPOTENSION [None]
  - COMA SCALE ABNORMAL [None]
  - BRADYCARDIA [None]
